FAERS Safety Report 7057601-4 (Version None)
Quarter: 2010Q4

REPORT INFORMATION
  Report Type: 
  Country: None (occurrence: None)
  Receive Date: 20101022
  Receipt Date: 20101007
  Transmission Date: 20110411
  Serious: Yes (Other)
  Sender: FDA-Public Use
  Company Number: PHHY2010MX67703

PATIENT
  Age: 60 Year
  Sex: Female

DRUGS (2)
  1. DIOVAN [Suspect]
     Indication: HYPERTENSION
     Dosage: 80 MG (1 TABLET PER DAY)
     Route: 048
  2. DIOVAN [Suspect]
     Dosage: 80 MG (1/4 TABLETS)
     Route: 048
     Dates: start: 20100901

REACTIONS (3)
  - BLOOD PRESSURE DECREASED [None]
  - DEAFNESS [None]
  - MALAISE [None]
